FAERS Safety Report 9318659 (Version 2)
Quarter: 2013Q3

REPORT INFORMATION
  Report Type: Report from Study
  Country: DE (occurrence: DE)
  Receive Date: 20130530
  Receipt Date: 20130722
  Transmission Date: 20140515
  Serious: Yes (Death, Hospitalization, Other)
  Sender: FDA-Public Use
  Company Number: DE-ELI_LILLY_AND_COMPANY-DE201305006060

PATIENT
  Sex: Female

DRUGS (1)
  1. TERIPARATIDE [Suspect]
     Indication: OSTEOPOROSIS
     Dosage: UNK, QD
     Route: 058
     Dates: start: 20130506

REACTIONS (7)
  - Organ failure [Fatal]
  - Sepsis [Fatal]
  - Large intestine perforation [Fatal]
  - Faecaloma [Fatal]
  - Peritonitis [Unknown]
  - Ileus [Not Recovered/Not Resolved]
  - Inflammation [Unknown]
